FAERS Safety Report 9729326 (Version 3)
Quarter: 2014Q1

REPORT INFORMATION
  Report Type: Spontaneous
  Country: US (occurrence: US)
  Receive Date: 20131204
  Receipt Date: 20140307
  Transmission Date: 20141002
  Serious: No
  Sender: FDA-Public Use
  Company Number: US-TEVA-448947USA

PATIENT
  Age: 22 Year
  Sex: Female
  Weight: 54.03 kg

DRUGS (3)
  1. PLAN B ONE-STEP [Suspect]
     Indication: POST COITAL CONTRACEPTION
     Dosage: 1.5 MILLIGRAM DAILY;
     Route: 048
     Dates: start: 20131005, end: 20131005
  2. NUVARING [Suspect]
     Indication: CONTRACEPTION
     Dates: start: 20131002
  3. MIRTAZAPINE [Concomitant]
     Indication: ANXIETY

REACTIONS (4)
  - Weight increased [Recovered/Resolved]
  - Metrorrhagia [Recovered/Resolved]
  - Menstruation delayed [Recovered/Resolved]
  - Menstruation irregular [Not Recovered/Not Resolved]
